FAERS Safety Report 18098509 (Version 1)
Quarter: 2020Q3

REPORT INFORMATION
  Report Type: Spontaneous
  Country: CN (occurrence: CN)
  Receive Date: 20200731
  Receipt Date: 20200731
  Transmission Date: 20201103
  Serious: Yes (Other)
  Sender: FDA-Public Use
  Company Number: CN-PFIZER INC-2020289504

PATIENT
  Age: 43 Year
  Sex: Female
  Weight: 66.5 kg

DRUGS (5)
  1. METRONIDAZOLE AND SODIUM CHLORIDE INJECTION [Suspect]
     Active Substance: METRONIDAZOLE\SODIUM CHLORIDE
     Indication: ADENOMYOSIS
     Dosage: 500 MG, 2X/DAY
     Route: 041
     Dates: start: 20200624, end: 20200702
  2. SODIUM CHLORIDE. [Concomitant]
     Active Substance: SODIUM CHLORIDE
     Indication: ADENOMYOSIS
     Dosage: 250 ML, 4X/DAY
     Route: 041
     Dates: start: 20200624, end: 20200702
  3. TAZOCIN [Suspect]
     Active Substance: PIPERACILLIN SODIUM\TAZOBACTAM SODIUM
     Indication: ANTI-INFECTIVE THERAPY
  4. METRONIDAZOLE AND SODIUM CHLORIDE INJECTION [Suspect]
     Active Substance: METRONIDAZOLE\SODIUM CHLORIDE
     Indication: ANTI-INFECTIVE THERAPY
  5. TAZOCIN [Suspect]
     Active Substance: PIPERACILLIN SODIUM\TAZOBACTAM SODIUM
     Indication: ADENOMYOSIS
     Dosage: 4.5 G, 4X/DAY
     Route: 041
     Dates: start: 20200624, end: 20200702

REACTIONS (2)
  - Drug-induced liver injury [Unknown]
  - Hepatic function abnormal [Unknown]

NARRATIVE: CASE EVENT DATE: 20200630
